FAERS Safety Report 9431777 (Version 1)
Quarter: 2013Q3

REPORT INFORMATION
  Report Type: Report from Study
  Country: US (occurrence: US)
  Receive Date: 20130731
  Receipt Date: 20130731
  Transmission Date: 20140515
  Serious: Yes (Hospitalization)
  Sender: FDA-Public Use
  Company Number: US-ALEXION-A201301716

PATIENT
  Age: 36 Year
  Sex: Female

DRUGS (4)
  1. SOLIRIS [Suspect]
     Indication: HAEMOLYTIC URAEMIC SYNDROME
     Dosage: UNK
     Route: 042
     Dates: end: 20130624
  2. SOLIRIS [Suspect]
     Dosage: UNK
     Route: 042
     Dates: start: 20130703, end: 20130703
  3. SOLIRIS [Suspect]
     Dosage: UNK
     Route: 042
     Dates: start: 20130711, end: 20130711
  4. SOLIRIS [Suspect]
     Dosage: UNK
     Route: 042
     Dates: start: 20130722

REACTIONS (1)
  - Renal transplant [Recovered/Resolved]
